FAERS Safety Report 7794078 (Version 4)
Quarter: 2014Q1

REPORT INFORMATION
  Report Type: Spontaneous
  Country: US (occurrence: US)
  Receive Date: 20110201
  Receipt Date: 20140121
  Transmission Date: 20141002
  Serious: Yes (Hospitalization, Other)
  Sender: FDA-Public Use
  Company Number: US-BAYER-2011-009762

PATIENT
  Age: 21 Year
  Sex: Female
  Weight: 70.3 kg

DRUGS (5)
  1. YAZ [Suspect]
     Dosage: UNK
     Dates: start: 200808, end: 200811
  2. PROMETHAZINE [Concomitant]
     Dosage: 25 MG, UNK
     Dates: start: 20090818
  3. CIPROFLOXACIN [Concomitant]
     Dosage: 500 MG, UNK
     Dates: start: 20090818
  4. IBUPROFEN [Concomitant]
     Dosage: 800 MG, UNK
     Dates: start: 20090819
  5. UROXATRAL [Concomitant]
     Dosage: 10 MG, UNK
     Dates: start: 20090819

REACTIONS (4)
  - Cholecystectomy [None]
  - Injury [None]
  - Pain [None]
  - Cholecystitis chronic [None]
